FAERS Safety Report 16990892 (Version 1)
Quarter: 2019Q4

REPORT INFORMATION
  Report Type: Spontaneous
  Country: US (occurrence: US)
  Receive Date: 20191104
  Receipt Date: 20191104
  Transmission Date: 20200122
  Serious: No
  Sender: FDA-Public Use
  Company Number: US-SA-2019SA299481

PATIENT
  Age: 76 Year
  Sex: Female

DRUGS (2)
  1. HUMALOG [Concomitant]
     Active Substance: INSULIN LISPRO
     Dosage: IS USING THE HUMALOG AS NEEDED, WHICH SHE HASN^T NEEDED
     Route: 065
  2. LANTUS SOLOSTAR [Suspect]
     Active Substance: INSULIN GLARGINE
     Indication: TYPE 1 DIABETES MELLITUS
     Dosage: 22 U, HS
     Route: 065

REACTIONS (2)
  - Incorrect dose administered [Unknown]
  - Surgery [Unknown]

NARRATIVE: CASE EVENT DATE: 20190913
